FAERS Safety Report 12465489 (Version 1)
Quarter: 2016Q2

REPORT INFORMATION
  Report Type: Report from Study
  Country: KR (occurrence: KR)
  Receive Date: 20160614
  Receipt Date: 20160614
  Transmission Date: 20160815
  Serious: No
  Sender: FDA-Public Use
  Company Number: PHHY2016KR081464

PATIENT
  Age: 77 Year
  Sex: Female

DRUGS (5)
  1. TASIGNA [Suspect]
     Active Substance: NILOTINIB
     Dosage: 150 MG, BID
     Route: 048
     Dates: start: 20140901, end: 20140915
  2. TASIGNA [Suspect]
     Active Substance: NILOTINIB
     Dosage: 150 MG, QOD,  EVERY OTHER DAY
     Route: 048
     Dates: start: 201603
  3. TASIGNA [Suspect]
     Active Substance: NILOTINIB
     Indication: CHRONIC MYELOID LEUKAEMIA
     Dosage: 300 MG, BID
     Route: 048
     Dates: start: 20140425, end: 20140831
  4. GLIVEC [Suspect]
     Active Substance: IMATINIB MESYLATE
     Indication: CHRONIC MYELOID LEUKAEMIA
     Dosage: 200 MG, QD
     Route: 048
     Dates: start: 20140916, end: 20140916
  5. TASIGNA [Suspect]
     Active Substance: NILOTINIB
     Dosage: 150 MG, QD
     Route: 048
     Dates: start: 20140917, end: 201603

REACTIONS (1)
  - Incorrect dose administered [Not Recovered/Not Resolved]

NARRATIVE: CASE EVENT DATE: 20140917
